FAERS Safety Report 14598395 (Version 1)
Quarter: 2018Q1

REPORT INFORMATION
  Report Type: Spontaneous
  Country: US (occurrence: US)
  Receive Date: 20180302
  Receipt Date: 20180302
  Transmission Date: 20180509
  Serious: Yes (Other)
  Sender: FDA-Public Use
  Company Number: None

PATIENT
  Age: 55 Year
  Sex: Male
  Weight: 90 kg

DRUGS (2)
  1. VITAMIN D3 [Concomitant]
     Active Substance: CHOLECALCIFEROL
  2. OSELTAMIVIR 75 MG CAPS, NDC 63739-050-07 [Suspect]
     Active Substance: OSELTAMIVIR PHOSPHATE
     Indication: INFLUENZA
     Dosage: ?          QUANTITY:10 CAPSULE(S);?
     Route: 048

REACTIONS (12)
  - Dysphonia [None]
  - Ocular hyperaemia [None]
  - Dizziness [None]
  - Eye swelling [None]
  - Insomnia [None]
  - Cough [None]
  - Eye irritation [None]
  - Lacrimation increased [None]
  - Productive cough [None]
  - Dysphagia [None]
  - Eye pruritus [None]
  - Faeces discoloured [None]

NARRATIVE: CASE EVENT DATE: 20180228
